FAERS Safety Report 4921198-2 (Version None)
Quarter: 2006Q1

REPORT INFORMATION
  Report Type: 
  Country: None (occurrence: None)
  Receive Date: 20060125
  Receipt Date: 20050318
  Transmission Date: 20060701
  Serious: Yes (Other)
  Sender: FDA-Public Use
  Company Number: HQWYE202421MAR05

PATIENT
  Age: 72 Year
  Sex: Male
  Weight: 72.64 kg

DRUGS (11)
  1. CORDARONE [Suspect]
     Indication: ATRIAL FIBRILLATION
     Dosage: 200 MG 2X PER 1 DAY, ORAL ; 100 MG 2X PER 1 DAY, ORAL
     Route: 048
     Dates: start: 20041101, end: 20041201
  2. CORDARONE [Suspect]
     Indication: ATRIAL FIBRILLATION
     Dosage: 200 MG 2X PER 1 DAY, ORAL ; 100 MG 2X PER 1 DAY, ORAL
     Route: 048
     Dates: start: 20041201, end: 20050317
  3. PREDNISONE TAB [Concomitant]
  4. IMURAN [Concomitant]
  5. SYNTHROID [Concomitant]
  6. COREG [Concomitant]
  7. CAPTOPRIL [Concomitant]
  8. LASIX [Concomitant]
  9. COUMADIN [Concomitant]
  10. ASPIRIN [Concomitant]
  11. AMBIEN [Concomitant]

REACTIONS (2)
  - DYSPEPSIA [None]
  - OPTIC NEURITIS [None]
